FAERS Safety Report 8543481-4 (Version None)
Quarter: 2012Q2

REPORT INFORMATION
  Report Type: 
  Country: None (occurrence: None)
  Receive Date: 20120412
  Receipt Date: 20081215
  Transmission Date: 20120825
  Serious: Yes (Other)
  Sender: FDA-Public Use
  Company Number: PHEH2007US01095

PATIENT
  Age: 48 Year
  Sex: Female

DRUGS (2)
  1. ZOMETA [Suspect]
     Indication: RESORPTION BONE INCREASED
     Dates: start: 20020101, end: 20050101
  2. AREDIA [Suspect]
     Indication: RESORPTION BONE INCREASED
     Dates: start: 19990101, end: 20020101

REACTIONS (10)
  - PERIODONTAL DISEASE [None]
  - DECREASED INTEREST [None]
  - EMOTIONAL DISTRESS [None]
  - OSTEONECROSIS [None]
  - INJURY [None]
  - SEQUESTRECTOMY [None]
  - PAIN [None]
  - GINGIVAL BLEEDING [None]
  - GINGIVITIS [None]
  - TOOTH EXTRACTION [None]
